FAERS Safety Report 5842495-2 (Version None)
Quarter: 2008Q3

REPORT INFORMATION
  Report Type: 
  Country: None (occurrence: None)
  Receive Date: 20080812
  Receipt Date: 20080806
  Transmission Date: 20090109
  Serious: Yes (Hospitalization, Disabling, Other)
  Sender: FDA-Public Use
  Company Number: US-BAXTER-2008BH008012

PATIENT
  Age: 59 Year
  Sex: Male
  Weight: 63 kg

DRUGS (2)
  1. AERRANE VET [Suspect]
     Indication: ANAESTHESIA
     Dosage: DOSE UNIT:UNKNOWN
     Route: 055
     Dates: start: 19880101
  2. AERRANE VET [Suspect]
     Indication: ACCIDENTAL EXPOSURE
     Dosage: DOSE UNIT:UNKNOWN
     Route: 055
     Dates: start: 19880101

REACTIONS (3)
  - COLITIS [None]
  - OCCUPATIONAL EXPOSURE TO TOXIC AGENT [None]
  - RENAL CELL CARCINOMA [None]
